FAERS Safety Report 14198171 (Version 1)
Quarter: 2017Q4

REPORT INFORMATION
  Report Type: Spontaneous
  Country: US (occurrence: US)
  Receive Date: 20171117
  Receipt Date: 20171117
  Transmission Date: 20180321
  Serious: No
  Sender: FDA-Public Use
  Company Number: US-LEO PHARMA-305471

PATIENT
  Sex: Female

DRUGS (2)
  1. PICATO [Suspect]
     Active Substance: INGENOL MEBUTATE
     Indication: PRODUCT USED FOR UNKNOWN INDICATION
     Route: 061
     Dates: start: 20171113, end: 20171115
  2. PICATO [Suspect]
     Active Substance: INGENOL MEBUTATE

REACTIONS (4)
  - Application site pruritus [Not Recovered/Not Resolved]
  - Product storage error [Unknown]
  - Inappropriate schedule of drug administration [Unknown]
  - Application site dryness [Not Recovered/Not Resolved]

NARRATIVE: CASE EVENT DATE: 20171116
